FAERS Safety Report 5042318-8 (Version None)
Quarter: 2006Q2

REPORT INFORMATION
  Report Type: 
  Country: None (occurrence: None)
  Receive Date: 20060627
  Receipt Date: 20060621
  Transmission Date: 20061013
  Serious: Yes (Death)
  Sender: FDA-Public Use
  Company Number: 163-21880-06060743

PATIENT
  Age: 68 Year
  Sex: Male

DRUGS (1)
  1. REVLIMID [Suspect]
     Indication: MULTIPLE MYELOMA
     Dosage: 10 MG DAILY ORAL
     Route: 048
     Dates: start: 20060616

REACTIONS (3)
  - BONE MARROW DISORDER [None]
  - MALIGNANT NEOPLASM PROGRESSION [None]
  - RED BLOOD CELL COUNT ABNORMAL [None]
